FAERS Safety Report 6126694-0 (Version None)
Quarter: 2009Q1

REPORT INFORMATION
  Report Type: 
  Country: None (occurrence: None)
  Receive Date: 20090320
  Receipt Date: 20090318
  Transmission Date: 20090719
  Serious: Yes (Death)
  Sender: FDA-Public Use
  Company Number: PHHY2009HU10204

PATIENT

DRUGS (1)
  1. STALEVO 100 [Suspect]

REACTIONS (1)
  - CARDIAC FAILURE [None]
